FAERS Safety Report 5232597-6 (Version None)
Quarter: 2007Q1

REPORT INFORMATION
  Report Type: 
  Country: None (occurrence: None)
  Receive Date: 20061204
  Receipt Date: 20060921
  Transmission Date: 20070707
  Serious: No
  Sender: FDA-Public Use
  Company Number: 2006-BP-10310BP

PATIENT
  Age: 75 Year
  Sex: Male
  Weight: 102 kg

DRUGS (6)
  1. SPIRIVA [Suspect]
     Indication: CHRONIC OBSTRUCTIVE PULMONARY DISEASE
     Dosage: 18 MCG (18 MCG,1 IN 1 D),IH
     Dates: start: 20060821, end: 20060823
  2. LANTUS [Concomitant]
  3. ATENOLOL [Concomitant]
  4. CARDURA [Concomitant]
  5. LYRICA [Concomitant]
  6. DIOVAN [Concomitant]

REACTIONS (3)
  - DRY MOUTH [None]
  - VASODILATATION [None]
  - VISION BLURRED [None]
